FAERS Safety Report 7551067-3 (Version None)
Quarter: 2011Q2

REPORT INFORMATION
  Report Type: 
  Country: None (occurrence: None)
  Receive Date: 20110616
  Receipt Date: 20110614
  Transmission Date: 20111010
  Serious: Yes (Other)
  Sender: FDA-Public Use
  Company Number: US-BRISTOL-MYERS SQUIBB COMPANY-15828619

PATIENT
  Age: 11 Year
  Sex: Male

DRUGS (1)
  1. ABILIFY [Suspect]
     Dosage: INITIATED AT 2MG; INCREASED TO 4MG BY MAY2010; WEANED OFF SINCE 03JUN2011; DOSE INCREASED TO 4MG
     Dates: start: 20100401

REACTIONS (4)
  - IRRITABILITY [None]
  - URETHRAL REPAIR [None]
  - URINARY RETENTION [None]
  - AGGRESSION [None]
